FAERS Safety Report 22227672 (Version 1)
Quarter: 2023Q2

REPORT INFORMATION
  Report Type: Spontaneous
  Country: US (occurrence: None)
  Receive Date: 20230418
  Receipt Date: 20230418
  Transmission Date: 20230722
  Serious: No
  Sender: FDA-Public Use
  Company Number: None

PATIENT
  Age: 75 Year
  Sex: Female
  Weight: 54 kg

DRUGS (11)
  1. LIDOCAINE [Suspect]
     Active Substance: LIDOCAINE
     Indication: Pain management
     Dosage: 2 PATCHES   ON 12 HRS/OFF 12 H  TRANSDERMAL?
     Route: 062
  2. ACETAMINOPHEN\CODEINE PHOSPHATE [Concomitant]
     Active Substance: ACETAMINOPHEN\CODEINE PHOSPHATE
  3. DIAZEPAM [Concomitant]
     Active Substance: DIAZEPAM
  4. L-Thyroxine 75 mcg [Concomitant]
  5. latanaprost Opth Sol .005% [Concomitant]
  6. LISINOPRIL [Concomitant]
     Active Substance: LISINOPRIL
  7. LIDOCAINE [Concomitant]
     Active Substance: LIDOCAINE
  8. VITAMINS [Concomitant]
     Active Substance: VITAMINS
  9. B-complex vitamins [Concomitant]
  10. daily probiotic [Concomitant]
  11. STOOL SOFTENER (DOCUSATE) [Concomitant]
     Active Substance: DOCUSATE

REACTIONS (5)
  - Product substitution issue [None]
  - Product label issue [None]
  - Product outer packaging issue [None]
  - Device leakage [None]
  - Incorrect dose administered by device [None]

NARRATIVE: CASE EVENT DATE: 20230414
